FAERS Safety Report 17215637 (Version 1)
Quarter: 2019Q4

REPORT INFORMATION
  Report Type: Spontaneous
  Country: DE (occurrence: DE)
  Receive Date: 20191230
  Receipt Date: 20191230
  Transmission Date: 20200122
  Serious: Yes (Other)
  Sender: FDA-Public Use
  Company Number: DE-ASTRAZENECA-2019SF87082

PATIENT
  Age: 83 Year
  Sex: Male
  Weight: 74 kg

DRUGS (6)
  1. BISOHEXAL [Concomitant]
     Active Substance: BISOPROLOL FUMARATE
  2. CRESTOR [Suspect]
     Active Substance: ROSUVASTATIN CALCIUM
     Route: 048
  3. METFORMIN [Concomitant]
     Active Substance: METFORMIN HYDROCHLORIDE
  4. CRESTOR [Suspect]
     Active Substance: ROSUVASTATIN CALCIUM
     Dosage: 5 MG EVERY SECOND DAY
     Route: 048
  5. CANDESARTAN. [Concomitant]
     Active Substance: CANDESARTAN
  6. RANEXA [Concomitant]
     Active Substance: RANOLAZINE

REACTIONS (3)
  - Blood creatinine increased [Unknown]
  - Off label use [Unknown]
  - Renal failure [Unknown]
